FAERS Safety Report 6819611-9 (Version None)
Quarter: 2010Q3

REPORT INFORMATION
  Report Type: 
  Country: None (occurrence: None)
  Receive Date: 20100701
  Receipt Date: 20100204
  Transmission Date: 20110219
  Serious: Yes (Hospitalization, Other)
  Sender: FDA-Public Use
  Company Number: US-TEVA-223440USA

PATIENT
  Sex: Female

DRUGS (2)
  1. AZILECT [Suspect]
     Indication: PARKINSON'S DISEASE
     Route: 048
     Dates: start: 20091001
  2. SINEMET [Suspect]
     Indication: PARKINSON'S DISEASE
     Dosage: 25/100:2 1/2 PILLS DAILY REDUCED TO 1 1/2 PILLS
     Route: 048

REACTIONS (7)
  - BLOOD PRESSURE DECREASED [None]
  - CHEST DISCOMFORT [None]
  - CHEST PAIN [None]
  - DIZZINESS [None]
  - DYSPNOEA [None]
  - HYPERTENSIVE CRISIS [None]
  - TYRAMINE REACTION [None]
